FAERS Safety Report 5308136-8 (Version None)
Quarter: 2007Q2

REPORT INFORMATION
  Report Type: 
  Country: None (occurrence: None)
  Receive Date: 20070423
  Receipt Date: 20070423
  Transmission Date: 20071010
  Serious: Yes (Death)
  Sender: FDA-Public Use
  Company Number: None

PATIENT
  Age: 25 Year
  Sex: Female
  Weight: 136.0791 kg

DRUGS (1)
  1. OXYCONTIN [Suspect]
     Indication: MIGRAINE
     Dosage: PO
     Route: 048
     Dates: start: 20060316, end: 20060316

REACTIONS (2)
  - CARDIAC ARREST [None]
  - COMA [None]
